FAERS Safety Report 14171054 (Version 1)
Quarter: 2017Q4

REPORT INFORMATION
  Report Type: Spontaneous
  Country: US (occurrence: US)
  Receive Date: 20171108
  Receipt Date: 20171108
  Transmission Date: 20180321
  Serious: No
  Sender: FDA-Public Use
  Company Number: US-ASTRAZENECA-2017SF10203

PATIENT
  Age: 41 Year
  Sex: Female
  Weight: 58.1 kg

DRUGS (3)
  1. VENTOLIN [Concomitant]
     Active Substance: ALBUTEROL SULFATE
  2. SYMBICORT [Suspect]
     Active Substance: BUDESONIDE\FORMOTEROL FUMARATE DIHYDRATE
     Indication: ASTHMA
     Route: 055
     Dates: start: 20171011
  3. SYMBICORT [Suspect]
     Active Substance: BUDESONIDE\FORMOTEROL FUMARATE DIHYDRATE
     Indication: ASTHMA
     Dosage: 80-4.5MCG TWO PUFFS IN THE MORNING
     Route: 055
     Dates: start: 2007

REACTIONS (8)
  - Nasal congestion [Recovered/Resolved]
  - Off label use [Not Recovered/Not Resolved]
  - Lacrimation increased [Recovered/Resolved]
  - Blood cholesterol increased [Unknown]
  - Intentional product misuse [Unknown]
  - Dyspnoea [Unknown]
  - Arthritis [Unknown]
  - Drug dose omission [Recovered/Resolved]

NARRATIVE: CASE EVENT DATE: 2007
